FAERS Safety Report 12054886 (Version 1)
Quarter: 2016Q1

REPORT INFORMATION
  Report Type: Spontaneous
  Country: US (occurrence: US)
  Receive Date: 20160209
  Receipt Date: 20160209
  Transmission Date: 20160526
  Serious: No
  Sender: FDA-Public Use
  Company Number: US-ABBVIE-15P-163-1467156-00

PATIENT

DRUGS (2)
  1. HUMIRA [Suspect]
     Active Substance: ADALIMUMAB
     Indication: PSORIASIS
     Route: 065
  2. STALERA [Concomitant]
     Indication: PSORIASIS

REACTIONS (5)
  - Stress [Unknown]
  - Drug ineffective [Unknown]
  - Dry skin [Unknown]
  - Feeling abnormal [Unknown]
  - Depression [Unknown]
